FAERS Safety Report 8246350-2 (Version None)
Quarter: 2012Q1

REPORT INFORMATION
  Report Type: 
  Country: None (occurrence: None)
  Receive Date: 20120330
  Receipt Date: 20120322
  Transmission Date: 20120608
  Serious: Yes (Life-Threatening)
  Sender: FDA-Public Use
  Company Number: FR-GE HEALTHCARE MEDICAL DIAGNOSTICS-VISP-NO-1203S-0128

PATIENT
  Sex: Male

DRUGS (3)
  1. AETOXISCLEROL [Suspect]
     Dates: start: 20101109, end: 20101109
  2. VISIPAQUE [Suspect]
     Indication: VARICOCELE REPAIR
     Route: 042
     Dates: start: 20101109, end: 20101109
  3. LIDOCAINE [Concomitant]

REACTIONS (6)
  - NEUROGENIC SHOCK [None]
  - CARDIAC ARREST [None]
  - NAUSEA [None]
  - BRADYCARDIA [None]
  - CLONUS [None]
  - HYPOAESTHESIA [None]
